FAERS Safety Report 9338012 (Version 1)
Quarter: 2013Q2

REPORT INFORMATION
  Report Type: Spontaneous
  Country: US (occurrence: US)
  Receive Date: 20130609
  Receipt Date: 20130609
  Transmission Date: 20140414
  Serious: Yes (Other)
  Sender: FDA-Public Use
  Company Number: US-BRISTOL-MYERS SQUIBB COMPANY-18966671

PATIENT
  Age: 67 Year
  Sex: Female
  Weight: 80.72 kg

DRUGS (3)
  1. ABATACEPT SUBQ INJECTION 125MG/ML [Suspect]
     Indication: RHEUMATOID ARTHRITIS
     Dosage: LAST DOSE: 28MAR2013
     Route: 058
     Dates: start: 20130320
  2. METHOTREXATE [Concomitant]
  3. REMICADE [Concomitant]

REACTIONS (3)
  - Wrist fracture [Unknown]
  - Local swelling [Unknown]
  - Night sweats [Unknown]
